FAERS Safety Report 8814602 (Version 3)
Quarter: 2012Q4

REPORT INFORMATION
  Report Type: 
  Country: US (occurrence: US)
  Receive Date: 20120928
  Receipt Date: 20121016
  Transmission Date: 20130627
  Serious: Yes (Other)
  Sender: FDA-Public Use
  Company Number: US-BAYER-2012-099899

PATIENT
  Age: 28 Year
  Sex: Female

DRUGS (3)
  1. MIRENA [Suspect]
     Dosage: 20 mcg/24hr, CONT
     Route: 015
     Dates: start: 20120730, end: 20120919
  2. LEVAQUIN [Concomitant]
     Dosage: 500 g, QD
  3. FLAGYL [Concomitant]
     Dosage: 500 g, BID

REACTIONS (14)
  - Post procedural haemorrhage [Recovered/Resolved]
  - Abdominal pain lower [None]
  - Patient-device incompatibility [None]
  - Vulvovaginal swelling [Recovered/Resolved]
  - Vulvovaginal pain [Recovered/Resolved]
  - Dizziness [Recovered/Resolved]
  - Nausea [Recovered/Resolved]
  - Vomiting [Recovered/Resolved]
  - Headache [None]
  - Vaginal discharge [None]
  - Abdominal pain upper [None]
  - Dyspareunia [None]
  - Galactorrhoea [Recovered/Resolved]
  - Menstrual disorder [None]
